FAERS Safety Report 9209669 (Version 1)
Quarter: 2013Q2

REPORT INFORMATION
  Report Type: Spontaneous
  Country: US (occurrence: None)
  Receive Date: 20130403
  Receipt Date: 20130403
  Transmission Date: 20140414
  Serious: Yes (Other)
  Sender: FDA-Public Use
  Company Number: None

PATIENT
  Age: 76 Year
  Sex: Female
  Weight: 62.6 kg

DRUGS (2)
  1. AVASTIN [Suspect]
     Dosage: EYE INJECTION APPROX - EVERY 8 WEEKS
     Dates: end: 201209
  2. EYLEA [Suspect]
     Dosage: EYE INJECTION APPROX EVERY 8 WEEKS
     Dates: end: 201211

REACTIONS (7)
  - Rash [None]
  - Pruritus [None]
  - Chills [None]
  - Night sweats [None]
  - Hypoaesthesia oral [None]
  - Hypoaesthesia oral [None]
  - Fatigue [None]
